FAERS Safety Report 7799705-4 (Version None)
Quarter: 2011Q4

REPORT INFORMATION
  Report Type: 
  Country: None (occurrence: None)
  Receive Date: 20111006
  Receipt Date: 20110927
  Transmission Date: 20120403
  Serious: Yes (Hospitalization)
  Sender: FDA-Public Use
  Company Number: PHHY2011CL85944

PATIENT
  Sex: Male

DRUGS (1)
  1. GILENYA [Suspect]
     Indication: MULTIPLE SCLEROSIS
     Dosage: 0.5 MG, UNK
     Dates: start: 20110601

REACTIONS (3)
  - MUSCULAR WEAKNESS [None]
  - UPPER RESPIRATORY TRACT INFECTION [None]
  - PYREXIA [None]
